FAERS Safety Report 21656227 (Version 1)
Quarter: 2022Q4

REPORT INFORMATION
  Report Type: Spontaneous
  Country: US (occurrence: None)
  Receive Date: 20221128
  Receipt Date: 20221128
  Transmission Date: 20230112
  Serious: No
  Sender: FDA-Public Use
  Company Number: None

PATIENT
  Sex: Male

DRUGS (1)
  1. DUPIXENT [Suspect]
     Active Substance: DUPILUMAB
     Indication: Dermatitis atopic
     Dosage: 300MG EVERY OTHER WEEK SUB-Q
     Route: 058

REACTIONS (5)
  - Injection site pain [None]
  - Incorrect dose administered [None]
  - Injection site reaction [None]
  - Urticaria [None]
  - Injection site pain [None]
